FAERS Safety Report 12428281 (Version 1)
Quarter: 2016Q2

REPORT INFORMATION
  Report Type: Spontaneous
  Country: CA (occurrence: CA)
  Receive Date: 20160602
  Receipt Date: 20160602
  Transmission Date: 20160815
  Serious: Yes (Life-Threatening, Hospitalization, Disabling, Other)
  Sender: FDA-Public Use
  Company Number: CA-GLAXOSMITHKLINE-CA2016GSK077314

PATIENT
  Age: 83 Year
  Sex: Female
  Weight: 76 kg

DRUGS (3)
  1. SALBUTAMOL SULPHATE [Interacting]
     Active Substance: ALBUTEROL SULFATE
     Indication: PRODUCT USED FOR UNKNOWN INDICATION
     Dosage: 1 DF, QID
     Route: 048
  2. FLOVENT DISKUS [Suspect]
     Active Substance: FLUTICASONE PROPIONATE
     Indication: PRODUCT USED FOR UNKNOWN INDICATION
     Dosage: 3 DF, 1D
     Route: 048
  3. ATROVENT [Interacting]
     Active Substance: IPRATROPIUM BROMIDE
     Indication: PRODUCT USED FOR UNKNOWN INDICATION
     Dosage: 3 DF, 1D
     Route: 048

REACTIONS (5)
  - Fatigue [Unknown]
  - Wheezing [Unknown]
  - Drug interaction [Unknown]
  - Chest pain [Unknown]
  - Insomnia [Unknown]
